FAERS Safety Report 11930584 (Version 2)
Quarter: 2016Q1

REPORT INFORMATION
  Report Type: Spontaneous
  Country: US (occurrence: US)
  Receive Date: 20160120
  Receipt Date: 20160120
  Transmission Date: 20160526
  Serious: No
  Sender: FDA-Public Use
  Company Number: US-NOVOPROD-474906

PATIENT
  Sex: Female

DRUGS (4)
  1. TRESIBA FLEXTOUCH U200 [Suspect]
     Active Substance: INSULIN DEGLUDEC
     Indication: TYPE 1 DIABETES MELLITUS
     Dosage: 16 U, QD
     Route: 058
     Dates: start: 20151215
  2. TRESIBA FLEXTOUCH U100 [Suspect]
     Active Substance: INSULIN DEGLUDEC
     Indication: TYPE 1 DIABETES MELLITUS
     Dosage: 15 U, QD
     Route: 058
     Dates: start: 20151215
  3. LANTUS [Suspect]
     Active Substance: INSULIN GLARGINE
     Indication: TYPE 1 DIABETES MELLITUS
     Dosage: 14U AM, 2U PM
     Route: 058
  4. HUMALOG [Concomitant]
     Active Substance: INSULIN LISPRO
     Indication: TYPE 1 DIABETES MELLITUS
     Dosage: 2 U, BID
     Route: 058

REACTIONS (4)
  - Blood glucose decreased [Recovered/Resolved]
  - Drug dispensing error [Unknown]
  - Blood glucose increased [Recovered/Resolved]
  - Drug ineffective [Recovered/Resolved]
